FAERS Safety Report 6222644-7 (Version None)
Quarter: 2009Q2

REPORT INFORMATION
  Report Type: 
  Country: None (occurrence: None)
  Receive Date: 20090605
  Receipt Date: 20090605
  Transmission Date: 20091009
  Serious: Yes (Hospitalization)
  Sender: FDA-Public Use
  Company Number: None

PATIENT
  Age: 54 Year
  Weight: 75.2971 kg

DRUGS (15)
  1. DOCETAXEL [Suspect]
     Indication: NON-SMALL CELL LUNG CANCER
     Dosage: 75MG/M2, ONCE Q21DAYS, IV
     Route: 042
     Dates: start: 20090521
  2. CISPLATIN [Suspect]
     Indication: NON-SMALL CELL LUNG CANCER
     Dosage: 75MG/M2, ONCE Q21DAYS, IV
     Route: 042
     Dates: start: 20090521
  3. CALCITRIOL [Concomitant]
  4. ATENOLOL [Concomitant]
  5. TRIAMTERENE AND HYDROCHLOROTHIAZIDE [Concomitant]
  6. ACETAMINOPHEN AND HYDROCODONE BITARTRATE [Concomitant]
  7. OXYCODONE HCL AND ACETAMINOPHEN [Concomitant]
  8. CARBAMAZEPINE [Concomitant]
  9. SERTRALINE [Concomitant]
  10. QUETIAPINE FUMARATE [Concomitant]
  11. ZOLPIDEM TARTRATE [Concomitant]
  12. PROCHLORPERAZINE [Concomitant]
  13. LORAZEPAM [Concomitant]
  14. ONDANSETRON [Concomitant]
  15. NICOTINE [Concomitant]

REACTIONS (6)
  - DEHYDRATION [None]
  - FEBRILE NEUTROPENIA [None]
  - LOSS OF CONSCIOUSNESS [None]
  - MALAISE [None]
  - PRESYNCOPE [None]
  - PYREXIA [None]
